FAERS Safety Report 6498933-8 (Version None)
Quarter: 2009Q4

REPORT INFORMATION
  Report Type: 
  Country: None (occurrence: None)
  Receive Date: 20091215
  Receipt Date: 20091204
  Transmission Date: 20100525
  Serious: Yes (Other)
  Sender: FDA-Public Use
  Company Number: GB-BAXTER-2007BH008220

PATIENT
  Age: 40 Year
  Sex: Male

DRUGS (2)
  1. CYCLOPHOSPHAMIDE [Suspect]
     Indication: CHRONIC MYELOID LEUKAEMIA
     Route: 065
  2. ALEMTUZUMAB [Suspect]
     Indication: CHRONIC MYELOID LEUKAEMIA
     Route: 065

REACTIONS (10)
  - CHRONIC GRAFT VERSUS HOST DISEASE [None]
  - CLONUS [None]
  - EXOPHTHALMOS [None]
  - HEADACHE [None]
  - HYPERREFLEXIA [None]
  - HYPOTHYROIDISM [None]
  - OROPHARYNGEAL PAIN [None]
  - TEMPERATURE INTOLERANCE [None]
  - TREMOR [None]
  - WEIGHT DECREASED [None]
